FAERS Safety Report 20790661 (Version 1)
Quarter: 2022Q2

REPORT INFORMATION
  Report Type: Spontaneous
  Country: US (occurrence: US)
  Receive Date: 20220505
  Receipt Date: 20220505
  Transmission Date: 20220721
  Serious: No
  Sender: FDA-Public Use
  Company Number: US-PFIZER INC-202101133097

PATIENT
  Age: 8 Year
  Sex: Female
  Weight: 24.49 kg

DRUGS (6)
  1. CELONTIN [Suspect]
     Active Substance: METHSUXIMIDE
     Indication: Petit mal epilepsy
     Dosage: 600MG IN MORNING AND 300MG AT NIGHT
  2. CELONTIN [Suspect]
     Active Substance: METHSUXIMIDE
     Indication: Eyelid myoclonus
     Dosage: 300 MG, 2X/DAY
  3. CELONTIN [Suspect]
     Active Substance: METHSUXIMIDE
     Indication: Seizure
  4. KLONOPIN [Concomitant]
     Active Substance: CLONAZEPAM
     Dosage: 0.25 MG, 2X/DAY
  5. FERROUS SULFATE [Concomitant]
     Active Substance: FERROUS SULFATE
     Indication: Blood iron decreased
     Dosage: 1 ML, 2X/DAY
  6. CHILDREN^S FIBER GUMMY [Concomitant]
     Dosage: TAKES ONE GUMMY TWICE A DAY

REACTIONS (5)
  - Therapeutic product effect incomplete [Unknown]
  - Eye movement disorder [Unknown]
  - Incoherent [Unknown]
  - Drooling [Unknown]
  - Loss of personal independence in daily activities [Unknown]

NARRATIVE: CASE EVENT DATE: 20210831
